FAERS Safety Report 6371472-0 (Version None)
Quarter: 2009Q3

REPORT INFORMATION
  Report Type: 
  Country: None (occurrence: None)
  Receive Date: 20090923
  Receipt Date: 20071116
  Transmission Date: 20100115
  Serious: Yes (Other)
  Sender: FDA-Public Use
  Company Number: US-ASTRAZENECA-2007UW09646

PATIENT
  Age: 406 Month
  Sex: Male
  Weight: 104.3 kg

DRUGS (7)
  1. SEROQUEL [Suspect]
     Indication: SLEEP DISORDER
     Dosage: 25 MG TO 200 MG
     Route: 048
     Dates: start: 20010625
  2. SEROQUEL [Suspect]
     Route: 048
     Dates: start: 20030301, end: 20060501
  3. PAXIL [Concomitant]
     Dates: start: 19940603
  4. LITHIUM CARBONATE [Concomitant]
     Dosage: 300 MG TO 600 MG
     Dates: start: 19940603
  5. GEODON [Concomitant]
     Dosage: 20 MG TO 60 MG
     Dates: start: 20010321
  6. DEPAKOTE ER [Concomitant]
     Dosage: 500 MG 3 BID
     Route: 048
     Dates: start: 20010913
  7. CELEBREX [Concomitant]
     Dates: start: 20010924

REACTIONS (2)
  - PANCREATITIS ACUTE [None]
  - TYPE 2 DIABETES MELLITUS [None]
